FAERS Safety Report 19952381 (Version 2)
Quarter: 2021Q4

REPORT INFORMATION
  Report Type: Spontaneous
  Country: US (occurrence: US)
  Receive Date: 20211013
  Receipt Date: 20211207
  Transmission Date: 20220303
  Serious: No
  Sender: FDA-Public Use
  Company Number: US-GW PHARMA-202110USGW04874

PATIENT

DRUGS (2)
  1. EPIDIOLEX [Suspect]
     Active Substance: CANNABIDIOL
     Indication: Epilepsy
     Dosage: 550 MILLIGRAM
     Route: 048
     Dates: start: 202012
  2. EPIDIOLEX [Suspect]
     Active Substance: CANNABIDIOL
     Indication: Epilepsy
     Dosage: ADDITIONAL BATCH NUMBER
     Route: 048

REACTIONS (1)
  - Weight abnormal [Unknown]

NARRATIVE: CASE EVENT DATE: 20210901
